FAERS Safety Report 22641928 (Version 1)
Quarter: 2023Q2

REPORT INFORMATION
  Report Type: Spontaneous
  Country: US (occurrence: US)
  Receive Date: 20230626
  Receipt Date: 20230626
  Transmission Date: 20230722
  Serious: No
  Sender: FDA-Public Use
  Company Number: US-PFIZER INC-PV202300107138

PATIENT
  Age: 17 Year
  Sex: Male

DRUGS (4)
  1. GENOTROPIN [Suspect]
     Active Substance: SOMATROPIN
     Indication: Prader-Willi syndrome
     Dosage: 1.2MG ALTERNATING WITH 1.4MG EVERY OTHER DAY 7 DAYS A WEEK)
  2. GENOTROPIN [Suspect]
     Active Substance: SOMATROPIN
     Dosage: 1.2MG ALTERNATING WITH 1.4MG EVERY OTHER DAY 7 DAYS A WEEK)
  3. GENOTROPIN [Suspect]
     Active Substance: SOMATROPIN
     Dosage: CUT IT DOWN TO 1.2 AND THEN 0.8 FOR THE LAST 3 SHOTS
  4. GENOTROPIN [Suspect]
     Active Substance: SOMATROPIN
     Dosage: CUT IT DOWN TO 1.2 AND THEN 0.8 FOR THE LAST 3 SHOTS

REACTIONS (2)
  - Fatigue [Unknown]
  - Intentional product misuse [Unknown]

NARRATIVE: CASE EVENT DATE: 20230601
